FAERS Safety Report 20141108 (Version 1)
Quarter: 2021Q4

REPORT INFORMATION
  Report Type: Spontaneous
  Country: PT (occurrence: PT)
  Receive Date: 20211202
  Receipt Date: 20211202
  Transmission Date: 20220303
  Serious: Yes (Other)
  Sender: FDA-Public Use
  Company Number: PT-SLATE RUN PHARMACEUTICALS-21PT000815

PATIENT

DRUGS (8)
  1. AZITHROMYCIN [Suspect]
     Active Substance: AZITHROMYCIN
     Indication: Pneumonia
     Dosage: UNK
     Dates: start: 2020
  2. HYDROXYCHLOROQUINE [Suspect]
     Active Substance: HYDROXYCHLOROQUINE
     Indication: COVID-19
     Dosage: 3.25 MILLIGRAM PER KILOGRAM, BID, ON SUBSEQUENT DAYS
     Dates: start: 2020, end: 2020
  3. HYDROXYCHLOROQUINE [Suspect]
     Active Substance: HYDROXYCHLOROQUINE
     Dosage: 6.5 MILLIGRAM PER KILOGRAM, BID
     Dates: start: 2020, end: 2020
  4. MORPHINE [Suspect]
     Active Substance: MORPHINE
     Indication: COVID-19
     Dosage: UNK
     Dates: start: 2020
  5. KETAMINE [Suspect]
     Active Substance: KETAMINE
     Indication: COVID-19
     Dosage: UNK
  6. OXYGEN [Concomitant]
     Active Substance: OXYGEN
     Indication: Supplementation therapy
  7. CEFOTAXIME [Concomitant]
     Active Substance: CEFOTAXIME SODIUM
     Indication: COVID-19
  8. CLINDAMYCIN [Concomitant]
     Active Substance: CLINDAMYCIN
     Indication: COVID-19

REACTIONS (2)
  - Cardiotoxicity [Recovered/Resolved]
  - Off label use [Unknown]

NARRATIVE: CASE EVENT DATE: 20200101
